FAERS Safety Report 8935162 (Version 2)
Quarter: 2012Q4

REPORT INFORMATION
  Report Type: Report from Study
  Country: US (occurrence: US)
  Receive Date: 20121129
  Receipt Date: 20121203
  Transmission Date: 20130627
  Serious: Yes (Other)
  Sender: FDA-Public Use
  Company Number: US-PFIZER INC-2012296485

PATIENT
  Age: 43 Year
  Sex: Female

DRUGS (23)
  1. LIPITOR [Suspect]
     Dosage: UNK
     Dates: end: 201201
  2. HUMIRA [Suspect]
     Indication: RHEUMATOID ARTHRITIS
     Dosage: 40 mg/0.8 mL Pen 1 in 2
     Dates: start: 201010, end: 2011
  3. HUMIRA [Suspect]
     Dosage: UNK
     Dates: start: 201110
  4. MULTIVITAMINS [Concomitant]
     Dosage: Daily
  5. OXYCONTIN [Concomitant]
     Indication: RHEUMATOID ARTHRITIS
     Dosage: 60 mg, 3x/day
  6. OXYCONTIN [Concomitant]
     Indication: FIBROMYALGIA
     Dosage: 30 mg, 3x/day
  7. OXYCONTIN [Concomitant]
     Indication: PAIN
  8. SAVELLA [Concomitant]
     Indication: FIBROMYALGIA
     Dosage: 200 mg, 2x/day
  9. VITAMIN D3 [Concomitant]
     Indication: VITAMIN SUPPLEMENTATION
     Dosage: Daily
  10. CRESTOR [Concomitant]
     Indication: CHOLESTEROL LEVELS RAISED
     Dosage: 20 mg, daily
     Dates: start: 201201
  11. WELLBUTRIN [Concomitant]
     Indication: DEPRESSION
     Dosage: 150 mg, 2x/day
  12. METHYLFOLATE [Concomitant]
     Indication: SUPPLEMENTATION THERAPY
     Dosage: 15 mg, daily
  13. NABUMETONE [Concomitant]
     Indication: ANTIINFLAMMATORY THERAPY
     Dosage: 750 mg, 2x/day
  14. NORFLEX [Concomitant]
     Indication: MUSCLE RELAXANT
     Dosage: 100 mg, 2x/day
  15. FLEXERIL [Concomitant]
     Indication: MUSCLE RELAXANT
     Dosage: 5 mg, 1x/day, at bedtime
  16. TOPAMAX [Concomitant]
     Indication: PROPHYLAXIS
     Dosage: 100 mg, at hour of sleep
  17. MELATONIN [Concomitant]
     Indication: SLEEP PROBLEM
     Dosage: 10 mg, 1x/day; at bedtime
  18. SEROQUEL [Concomitant]
     Indication: SLEEP PROBLEM
     Dosage: 25 mg, at hour of sleep
     Dates: start: 201204
  19. METHOTREXATE [Concomitant]
     Dosage: 1 in 1 wk
  20. PERCOCET [Concomitant]
     Indication: RHEUMATOID ARTHRITIS
     Dosage: 10/325 mg, 4x/day
     Dates: start: 201206
  21. PERCOCET [Concomitant]
     Indication: FIBROMYALGIA
  22. PERCOCET [Concomitant]
     Indication: PAIN
  23. OXYCODONE [Concomitant]
     Indication: PAIN
     Dosage: 15 mg, 4x/day

REACTIONS (20)
  - Cerebral artery embolism [Unknown]
  - Intervertebral disc protrusion [Unknown]
  - Multiple sclerosis [Unknown]
  - Cerebral cyst [Unknown]
  - Cardiac disorder [Unknown]
  - Arthralgia [Unknown]
  - Central nervous system lesion [Unknown]
  - Aspartate aminotransferase increased [Unknown]
  - Alanine aminotransferase increased [Unknown]
  - Alanine aminotransferase increased [Unknown]
  - Aspartate aminotransferase increased [Unknown]
  - Herpes zoster [Unknown]
  - Walking aid user [Unknown]
  - Osteopenia [Unknown]
  - Depression [Recovering/Resolving]
  - Epstein-Barr virus infection [Unknown]
  - Pain [Unknown]
  - Pruritus [Unknown]
  - Headache [Unknown]
  - Tension headache [Unknown]
